FAERS Safety Report 11895109 (Version 1)
Quarter: 2016Q1

REPORT INFORMATION
  Report Type: Spontaneous
  Country: US (occurrence: US)
  Receive Date: 20160107
  Receipt Date: 20160107
  Transmission Date: 20160526
  Serious: Yes (Other)
  Sender: FDA-Public Use
  Company Number: US-JNJFOC-20151225957

PATIENT

DRUGS (10)
  1. CISPLATIN. [Suspect]
     Active Substance: CISPLATIN
     Indication: OSTEOSARCOMA
     Dosage: (120 MG/M2/CYCLE X 4)
     Route: 065
  2. DOXORUBICIN HYDROCHLORIDE. [Suspect]
     Active Substance: DOXORUBICIN HYDROCHLORIDE
     Indication: OSTEOSARCOMA
     Route: 042
  3. ETOPOSIDE. [Suspect]
     Active Substance: ETOPOSIDE
     Indication: OSTEOSARCOMA
     Dosage: 3 CYCLES, (TOTAL 1,500 MG/M2)
     Route: 065
  4. DOXORUBICIN HYDROCHLORIDE. [Suspect]
     Active Substance: DOXORUBICIN HYDROCHLORIDE
     Indication: OSTEOSARCOMA
     Dosage: 75 MG/M2/CYCLE X 6).
     Route: 042
  5. DEXRAZOXANE. [Suspect]
     Active Substance: DEXRAZOXANE
     Indication: OSTEOSARCOMA
     Route: 065
  6. FILGRASTIM [Concomitant]
     Active Substance: FILGRASTIM
     Route: 065
  7. METHOTREXATE [Suspect]
     Active Substance: METHOTREXATE
     Indication: OSTEOSARCOMA
     Dosage: 12 G/M2 (MAXIMUM 20 G) X 10 DOSES
     Route: 065
  8. LEUCOVORIN. [Suspect]
     Active Substance: LEUCOVORIN
     Indication: OSTEOSARCOMA
     Route: 065
  9. IFOSFAMIDE. [Suspect]
     Active Substance: IFOSFAMIDE
     Indication: OSTEOSARCOMA
     Dosage: 27 G/M2 (9 G/M2/CYCLE X 3)
     Route: 065
  10. IFOSFAMIDE. [Suspect]
     Active Substance: IFOSFAMIDE
     Indication: OSTEOSARCOMA
     Dosage: 14 G/M2 PER CYCLE (CUMULATIVE 60 G/M2)
     Route: 065

REACTIONS (39)
  - Hypomagnesaemia [Unknown]
  - Alanine aminotransferase abnormal [Unknown]
  - Neutropenic infection [Unknown]
  - Nausea [Unknown]
  - Vomiting [Unknown]
  - Hyperkalaemia [Unknown]
  - Wound infection [Unknown]
  - Hypotension [Unknown]
  - Febrile neutropenia [Unknown]
  - Hypermagnesaemia [Unknown]
  - Oesophagitis [Unknown]
  - Device related infection [Unknown]
  - Hyperglycaemia [Unknown]
  - Hypocalcaemia [Unknown]
  - Pharyngitis [Unknown]
  - Left ventricular dysfunction [Unknown]
  - Constipation [Unknown]
  - Troponin T increased [Unknown]
  - Neutrophil count abnormal [Unknown]
  - Epistaxis [Unknown]
  - Aspartate aminotransferase abnormal [Unknown]
  - Granulocytes abnormal [Unknown]
  - Dysphagia [Unknown]
  - Platelet disorder [Unknown]
  - Hyponatraemia [Unknown]
  - White blood cell disorder [Unknown]
  - Cardiotoxicity [Unknown]
  - Hypoacusis [Unknown]
  - Decreased appetite [Unknown]
  - Hypophosphataemia [Unknown]
  - Blood creatinine abnormal [Unknown]
  - Haemoglobin abnormal [Unknown]
  - Stomatitis [Unknown]
  - Infection [Unknown]
  - Diarrhoea [Unknown]
  - Blood bilirubin abnormal [Unknown]
  - Hypokalaemia [Unknown]
  - Product use issue [Unknown]
  - Off label use [Unknown]
